FAERS Safety Report 11738348 (Version 1)
Quarter: 2015Q4

REPORT INFORMATION
  Report Type: Spontaneous
  Country: US (occurrence: US)
  Receive Date: 20151110
  Receipt Date: 20151110
  Transmission Date: 20160304
  Serious: No
  Sender: FDA-Public Use
  Company Number: US-ELI_LILLY_AND_COMPANY-US201201004738

PATIENT
  Age: 81 Year
  Sex: Female

DRUGS (6)
  1. FORTEO [Suspect]
     Active Substance: TERIPARATIDE
     Indication: OSTEOPOROSIS
     Dosage: 20 UG, QD
     Route: 065
     Dates: start: 20111225
  2. FORTEO [Suspect]
     Active Substance: TERIPARATIDE
     Dosage: 20 UG, QD
     Route: 065
  3. CALCIUM [Concomitant]
     Active Substance: CALCIUM
  4. FORTEO [Suspect]
     Active Substance: TERIPARATIDE
     Dosage: 20 UG, QD
     Route: 065
     Dates: end: 20120704
  5. FORTEO [Suspect]
     Active Substance: TERIPARATIDE
     Dosage: 20 UG, QD
     Route: 065
  6. HYDROCHLOROTHIAZIDE. [Concomitant]
     Active Substance: HYDROCHLOROTHIAZIDE
     Dosage: 25 MG, QD

REACTIONS (17)
  - Multiple allergies [Unknown]
  - Dizziness [Unknown]
  - Asthenia [Recovering/Resolving]
  - Eustachian tube disorder [Unknown]
  - Nausea [Recovered/Resolved]
  - Blood calcium increased [Unknown]
  - Psoriasis [Recovered/Resolved]
  - Stress [Unknown]
  - Fatigue [Not Recovered/Not Resolved]
  - Nasopharyngitis [Not Recovered/Not Resolved]
  - Bronchitis [Recovered/Resolved]
  - Ear disorder [Recovering/Resolving]
  - Middle ear effusion [Recovering/Resolving]
  - Balance disorder [Unknown]
  - Tinnitus [Recovering/Resolving]
  - Erythema [Recovering/Resolving]
  - Dizziness [Recovered/Resolved]

NARRATIVE: CASE EVENT DATE: 201201
